FAERS Safety Report 7897454-5 (Version None)
Quarter: 2011Q4

REPORT INFORMATION
  Report Type: 
  Country: None (occurrence: None)
  Receive Date: 20111107
  Receipt Date: 20111103
  Transmission Date: 20120403
  Serious: Yes (Death, Other)
  Sender: FDA-Public Use
  Company Number: US-JNJFOC-20111101774

PATIENT
  Sex: Male

DRUGS (2)
  1. PREDNISONE [Concomitant]
     Indication: PROSTATE CANCER
     Route: 065
  2. ZYTIGA [Suspect]
     Indication: PROSTATE CANCER
     Route: 048
     Dates: start: 20110816, end: 20111031

REACTIONS (13)
  - SPINAL CORD COMPRESSION [None]
  - PROSTATE CANCER [None]
  - BACK PAIN [None]
  - HYPOKALAEMIA [None]
  - HYPOAESTHESIA [None]
  - DECREASED APPETITE [None]
  - WEIGHT DECREASED [None]
  - ABDOMINAL PAIN LOWER [None]
  - FAILURE TO THRIVE [None]
  - MUSCULAR WEAKNESS [None]
  - MOBILITY DECREASED [None]
  - OEDEMA PERIPHERAL [None]
  - THROMBOCYTOPENIA [None]
